FAERS Safety Report 21555327 (Version 1)
Quarter: 2022Q4

REPORT INFORMATION
  Report Type: Spontaneous
  Country: US (occurrence: US)
  Receive Date: 20221104
  Receipt Date: 20221104
  Transmission Date: 20230113
  Serious: Yes (Other)
  Sender: FDA-Public Use
  Company Number: US-MYLANLABS-2022M1120832

PATIENT
  Age: 60 Year
  Sex: Male

DRUGS (2)
  1. METHOTREXATE [Suspect]
     Active Substance: METHOTREXATE
     Indication: Retinopathy proliferative
     Dosage: UNK, QW, 400MICROG/0.1ML
  2. METHOTREXATE [Suspect]
     Active Substance: METHOTREXATE
     Dosage: FREQUENCY OF THE INJECTIONS WAS DECREASED TO EVERY 2 WEEKS FOR A TOTAL OF 11 INJECTIONS
     Route: 065

REACTIONS (2)
  - Corneal toxicity [Recovered/Resolved]
  - Off label use [Unknown]
